FAERS Safety Report 5677202-X (Version None)
Quarter: 2008Q1

REPORT INFORMATION
  Report Type: 
  Country: None (occurrence: None)
  Receive Date: 20080324
  Receipt Date: 20080319
  Transmission Date: 20080703
  Serious: Yes (Life-Threatening, Hospitalization, Disabling, Other)
  Sender: FDA-Public Use
  Company Number: A0716426A

PATIENT
  Sex: Male

DRUGS (2)
  1. BEXXAR [Suspect]
     Indication: NON-HODGKIN'S LYMPHOMA
     Route: 042
     Dates: start: 20080101, end: 20080101
  2. NO CONCURRENT MEDICATION [Concomitant]

REACTIONS (1)
  - BONE MARROW FAILURE [None]
